FAERS Safety Report 6655153-1 (Version None)
Quarter: 2010Q1

REPORT INFORMATION
  Report Type: 
  Country: None (occurrence: None)
  Receive Date: 20100329
  Receipt Date: 20100323
  Transmission Date: 20100710
  Serious: Yes (Life-Threatening, Hospitalization)
  Sender: FDA-Public Use
  Company Number: DE-NAPPMUNDI-DEU-2010-0006083

PATIENT
  Sex: Female
  Weight: 90 kg

DRUGS (5)
  1. OXYGESIC 80 MG [Suspect]
     Indication: PAIN
     Dosage: 80 MG, UNK
     Route: 048
  2. MEPERIDINE HCL [Suspect]
     Indication: PAIN
     Route: 048
  3. LYRICA [Concomitant]
  4. COMBAREN [Concomitant]
  5. TRANCOPAL [Concomitant]

REACTIONS (2)
  - CONVULSION [None]
  - WEIGHT DECREASED [None]
